FAERS Safety Report 10314030 (Version 1)
Quarter: 2014Q3

REPORT INFORMATION
  Report Type: Spontaneous
  Country: GB (occurrence: GB)
  Receive Date: 20140718
  Receipt Date: 20140718
  Transmission Date: 20150326
  Serious: Yes (Hospitalization)
  Sender: FDA-Public Use
  Company Number: GB-WATSON-2014-15376

PATIENT
  Age: 69 Year
  Sex: Male
  Weight: 97 kg

DRUGS (2)
  1. RAMIPRIL (UNKNOWN) [Suspect]
     Active Substance: RAMIPRIL
     Indication: HYPERTENSION
     Dosage: UNK
     Route: 048
  2. ATORVASTATIN [Concomitant]
     Active Substance: ATORVASTATIN
     Indication: HYPERTENSION
     Dosage: UNK
     Route: 065
     Dates: start: 2004

REACTIONS (3)
  - Arrhythmia [Recovered/Resolved]
  - Atrial fibrillation [Recovered/Resolved]
  - Lower respiratory tract infection [Recovered/Resolved]
